FAERS Safety Report 20604402 (Version 1)
Quarter: 2022Q1

REPORT INFORMATION
  Report Type: Other
  Country: US (occurrence: None)
  Receive Date: 20220316
  Receipt Date: 20220316
  Transmission Date: 20220423
  Serious: Yes (Death, Other)
  Sender: FDA-Public Use
  Company Number: US-ROCHE-2984688

PATIENT
  Age: 49 Year
  Sex: Female
  Weight: 74.093 kg

DRUGS (30)
  1. OCREVUS [Suspect]
     Active Substance: OCRELIZUMAB
     Indication: Relapsing-remitting multiple sclerosis
     Dosage: DATE OF TREATMENT: 01/APR/2019, 29/APR/2019, 15/NOV/2019, 18/JUN/2020,
     Route: 042
     Dates: start: 20200618
  2. OCREVUS [Suspect]
     Active Substance: OCRELIZUMAB
     Route: 042
     Dates: start: 20210728
  3. ALPRAZOLAM [Concomitant]
     Active Substance: ALPRAZOLAM
     Route: 048
     Dates: start: 20211019
  4. AMOXICILLIN [Concomitant]
     Active Substance: AMOXICILLIN
     Route: 048
     Dates: start: 20210914
  5. AMPYRA [Concomitant]
     Active Substance: DALFAMPRIDINE
     Dates: start: 20210728
  6. ASPIRIN [Concomitant]
     Active Substance: ASPIRIN
     Route: 048
     Dates: start: 20210917
  7. BACLOFEN [Concomitant]
     Active Substance: BACLOFEN
     Route: 048
     Dates: start: 20211112
  8. BOTOX [Concomitant]
     Active Substance: ONABOTULINUMTOXINA
     Dosage: DOSE: 200 UNIT
     Dates: start: 20210728
  9. CIPROFLOXACIN [Concomitant]
     Active Substance: CIPROFLOXACIN
     Route: 048
     Dates: start: 20211020
  10. DESVENLAFAXINE SUCCINATE [Concomitant]
     Active Substance: DESVENLAFAXINE SUCCINATE
     Route: 048
     Dates: start: 20211019
  11. DICYCLOMINE [Concomitant]
     Active Substance: DICYCLOMINE HYDROCHLORIDE
     Route: 048
     Dates: start: 20210925
  12. ELAVIL [Concomitant]
     Active Substance: AMITRIPTYLINE HYDROCHLORIDE
     Dates: start: 20210728
  13. VITAMIN D2 [Concomitant]
     Active Substance: ERGOCALCIFEROL
     Route: 048
     Dates: start: 20210731
  14. FERROUS SULFATE [Concomitant]
     Active Substance: FERROUS SULFATE
     Route: 048
     Dates: start: 20210728
  15. FLUCONAZOLE [Concomitant]
     Active Substance: FLUCONAZOLE
     Route: 048
     Dates: start: 20211020
  16. INCRUSE ELLIPTA [Concomitant]
     Active Substance: UMECLIDINIUM BROMIDE
     Dates: start: 20210730
  17. INDOMETHACIN [Concomitant]
     Active Substance: INDOMETHACIN
     Route: 048
     Dates: start: 20211027
  18. LINZESS [Concomitant]
     Active Substance: LINACLOTIDE
     Route: 054
     Dates: start: 20211107
  19. METHYLPREDNISOLONE [Concomitant]
     Active Substance: METHYLPREDNISOLONE
     Route: 048
     Dates: start: 20210914
  20. METRONIDAZOLE [Concomitant]
     Active Substance: METRONIDAZOLE
     Route: 048
     Dates: start: 20211020
  21. NARCAN [Concomitant]
     Active Substance: NALOXONE HYDROCHLORIDE
     Route: 045
     Dates: start: 20211028
  22. NEURONTIN [Concomitant]
     Active Substance: GABAPENTIN
     Dates: start: 20210728
  23. OXYBUTYNIN CHLORIDE [Concomitant]
     Active Substance: OXYBUTYNIN CHLORIDE
     Route: 048
     Dates: start: 20211112
  24. OXYCODONE [Concomitant]
     Active Substance: OXYCODONE
     Route: 048
     Dates: start: 20211027
  25. PANTOPRAZOLE [Concomitant]
     Active Substance: PANTOPRAZOLE
     Route: 048
     Dates: start: 20210810
  26. SUCRALFATE [Concomitant]
     Active Substance: SUCRALFATE
     Route: 048
     Dates: start: 20211019
  27. TOPIRAMATE [Concomitant]
     Active Substance: TOPIRAMATE
     Route: 048
     Dates: start: 20211112
  28. URSODIOL [Concomitant]
     Active Substance: URSODIOL
     Route: 048
     Dates: start: 20210810
  29. VALACYCLOVIR [Concomitant]
     Active Substance: VALACYCLOVIR HYDROCHLORIDE
     Route: 048
     Dates: start: 20210809
  30. ZIPRASIDONE [Concomitant]
     Active Substance: ZIPRASIDONE
     Route: 048
     Dates: start: 20211019

REACTIONS (7)
  - Death [Fatal]
  - Urge incontinence [Unknown]
  - Migraine [Unknown]
  - Multiple sclerosis [Unknown]
  - Spinal osteoarthritis [Unknown]
  - Dyskinesia [Unknown]
  - Dysaesthesia [Unknown]

NARRATIVE: CASE EVENT DATE: 20220130
